FAERS Safety Report 19832489 (Version 3)
Quarter: 2022Q4

REPORT INFORMATION
  Report Type: Report from Study
  Country: FR (occurrence: FR)
  Receive Date: 20210914
  Receipt Date: 20221110
  Transmission Date: 20230113
  Serious: Yes (Hospitalization)
  Sender: FDA-Public Use
  Company Number: FR-TAKEDA-FR201945892

PATIENT
  Age: 69 Year
  Sex: Female

DRUGS (16)
  1. TEDUGLUTIDE [Suspect]
     Active Substance: TEDUGLUTIDE
     Indication: Short-bowel syndrome
     Dosage: 2.4 MILLIGRAM, QD
     Route: 042
     Dates: start: 20190129, end: 202010
  2. TEDUGLUTIDE [Suspect]
     Active Substance: TEDUGLUTIDE
     Indication: Short-bowel syndrome
     Dosage: 2.4 MILLIGRAM, QD
     Route: 042
     Dates: start: 20190129, end: 202010
  3. TEDUGLUTIDE [Suspect]
     Active Substance: TEDUGLUTIDE
     Indication: Short-bowel syndrome
     Dosage: 2.4 MILLIGRAM, QD
     Route: 042
     Dates: start: 20190129, end: 202010
  4. TEDUGLUTIDE [Suspect]
     Active Substance: TEDUGLUTIDE
     Indication: Short-bowel syndrome
     Dosage: 2.4 MILLIGRAM, QD
     Route: 042
     Dates: start: 20190129, end: 202010
  5. TEDUGLUTIDE [Suspect]
     Active Substance: TEDUGLUTIDE
     Dosage: 2.4 MILLIGRAM, QD
     Route: 042
     Dates: start: 20201023, end: 20201103
  6. TEDUGLUTIDE [Suspect]
     Active Substance: TEDUGLUTIDE
     Dosage: 2.4 MILLIGRAM, QD
     Route: 042
     Dates: start: 20201023, end: 20201103
  7. TEDUGLUTIDE [Suspect]
     Active Substance: TEDUGLUTIDE
     Dosage: 2.4 MILLIGRAM, QD
     Route: 042
     Dates: start: 20201023, end: 20201103
  8. TEDUGLUTIDE [Suspect]
     Active Substance: TEDUGLUTIDE
     Dosage: 2.4 MILLIGRAM, QD
     Route: 042
     Dates: start: 20201023, end: 20201103
  9. ACETAMINOPHEN [Concomitant]
     Active Substance: ACETAMINOPHEN
     Indication: Prophylaxis
     Dosage: 1 INTERNATIONAL UNIT
     Route: 048
  10. GLUCONATE DE CALCIUM AGUETTANT [Concomitant]
     Indication: Prophylaxis
     Dosage: 2 DOSAGE FORM, 2/WEEK
     Route: 042
  11. MAGNESIUM ARROW [Concomitant]
     Indication: Prophylaxis
     Dosage: 2 DOSAGE FORM, 2/WEEK
     Route: 042
  12. CERNEVIT [Concomitant]
     Active Substance: VITAMINS
     Indication: Prophylaxis
     Dosage: 1 INTERNATIONAL UNIT, 2/WEEK
     Route: 042
  13. TAUROLIDINE [Concomitant]
     Active Substance: TAUROLIDINE
     Indication: Vascular device infection
     Dosage: UNK UNK, QD
     Route: 050
     Dates: start: 20220401
  14. VANCOMYCIN [Concomitant]
     Active Substance: VANCOMYCIN
     Indication: Vascular device infection
     Dosage: UNK UNK, QD
     Route: 050
     Dates: start: 20220316, end: 20220331
  15. LINEZOLID [Concomitant]
     Active Substance: LINEZOLID
     Indication: Vascular device infection
     Dosage: 600 MILLIGRAM, BID
     Route: 042
     Dates: start: 20220321, end: 20220328
  16. DAPTOMYCIN [Concomitant]
     Active Substance: DAPTOMYCIN
     Indication: Vascular device infection
     Dosage: UNK UNK, QD
     Route: 042
     Dates: start: 20220316, end: 20220320

REACTIONS (2)
  - Dehydration [Recovered/Resolved]
  - Viral infection [Recovered/Resolved]

NARRATIVE: CASE EVENT DATE: 20190705
